FAERS Safety Report 9576860 (Version 1)
Quarter: 2013Q4

REPORT INFORMATION
  Report Type: Spontaneous
  Country: US (occurrence: US)
  Receive Date: 20131001
  Receipt Date: 20131001
  Transmission Date: 20140711
  Serious: No
  Sender: FDA-Public Use
  Company Number: US-AMGEN-USASP2013004572

PATIENT
  Sex: Female
  Weight: 74.83 kg

DRUGS (4)
  1. ENBREL [Suspect]
     Indication: PSORIASIS
     Dosage: 50 MG, QWK
     Route: 058
  2. MULTIVITAMIN                       /00097801/ [Concomitant]
     Dosage: UNK
  3. CARBATROL [Concomitant]
     Dosage: 200 MG, UNK
  4. METHOTREXATE [Concomitant]
     Dosage: 20 MG, UNK

REACTIONS (1)
  - Drug ineffective [Unknown]
